FAERS Safety Report 19470407 (Version 4)
Quarter: 2022Q1

REPORT INFORMATION
  Report Type: Spontaneous
  Country: US (occurrence: US)
  Receive Date: 20210628
  Receipt Date: 20220304
  Transmission Date: 20220424
  Serious: Yes (Other)
  Sender: FDA-Public Use
  Company Number: US-PFIZER INC-2021709306

PATIENT
  Age: 34 Year
  Sex: Male
  Weight: 74.84 kg

DRUGS (5)
  1. TOZINAMERAN [Suspect]
     Active Substance: TOZINAMERAN
     Indication: COVID-19 immunisation
     Dosage: DOSE 2, SINGLE
     Dates: start: 20210405, end: 20210405
  2. SINEQUAN [Suspect]
     Active Substance: DOXEPIN HYDROCHLORIDE
     Dosage: UNK
  3. MONTELUKAST [Suspect]
     Active Substance: MONTELUKAST SODIUM
     Dosage: UNK
  4. PREDNISONE [Suspect]
     Active Substance: PREDNISONE
     Dosage: UNK
  5. PROPECIA [Concomitant]
     Active Substance: FINASTERIDE
     Indication: Alopecia
     Dosage: 1 MG, WEEKLY

REACTIONS (15)
  - Autoimmune disorder [Unknown]
  - Therapeutic product effect incomplete [Unknown]
  - Systemic lupus erythematosus [Unknown]
  - Urticaria chronic [Recovered/Resolved]
  - Paraesthesia [Unknown]
  - Drug effect less than expected [Unknown]
  - Erythema [Not Recovered/Not Resolved]
  - Pruritus [Not Recovered/Not Resolved]
  - Rash [Not Recovered/Not Resolved]
  - Urticaria [Not Recovered/Not Resolved]
  - Inflammation [Unknown]
  - Urticaria [Unknown]
  - Depressed mood [Unknown]
  - Lethargy [Unknown]
  - Abdominal distension [Unknown]

NARRATIVE: CASE EVENT DATE: 20210101
